FAERS Safety Report 12889210 (Version 1)
Quarter: 2016Q4

REPORT INFORMATION
  Report Type: Spontaneous
  Country: CA (occurrence: CA)
  Receive Date: 20161027
  Receipt Date: 20161027
  Transmission Date: 20170207
  Serious: Yes (Life-Threatening, Other)
  Sender: FDA-Public Use
  Company Number: CA-TEVA-699894ACC

PATIENT
  Age: 18 Year
  Sex: Female

DRUGS (2)
  1. APO-AMOXIL/CLAVULANIC ACID [Concomitant]
     Active Substance: AMOXICILLIN\CLAVULANIC ACID
     Dosage: 1500 MILLIGRAM DAILY;
     Dates: start: 20160925
  2. TEVA-PREDNISONE [Suspect]
     Active Substance: PREDNISONE
     Indication: TRACHEAL INFLAMMATION
     Dosage: TOOK 2 TABLETS OVER 2 DAYS
     Dates: start: 20160920, end: 20160924

REACTIONS (6)
  - Adverse reaction [Recovered/Resolved]
  - Product label confusion [None]
  - Dyspnoea [Recovered/Resolved]
  - Documented hypersensitivity to administered product [None]
  - Reaction to drug excipients [None]
  - Rash generalised [Recovered/Resolved]

NARRATIVE: CASE EVENT DATE: 20160924
